FAERS Safety Report 16894781 (Version 1)
Quarter: 2019Q4

REPORT INFORMATION
  Report Type: Spontaneous
  Country: JP (occurrence: JP)
  Receive Date: 20191008
  Receipt Date: 20191008
  Transmission Date: 20200122
  Serious: Yes (Hospitalization, Other)
  Sender: FDA-Public Use
  Company Number: JP-SHIRE-JP201909869AA

PATIENT
  Age: 48 Year
  Sex: Male
  Weight: 56.5 kg

DRUGS (8)
  1. AGRYLIN [Suspect]
     Active Substance: ANAGRELIDE HYDROCHLORIDE
     Dosage: 2.5 MILLIGRAM, 1X/DAY:QD
     Route: 048
     Dates: start: 20180410, end: 20180618
  2. HYDREA [Concomitant]
     Active Substance: HYDROXYUREA
     Indication: ESSENTIAL THROMBOCYTHAEMIA
     Dosage: 500 MILLIGRAM/DAY
     Route: 048
     Dates: start: 20181211, end: 20190219
  3. AGRYLIN [Suspect]
     Active Substance: ANAGRELIDE HYDROCHLORIDE
     Dosage: 1.5 MILLIGRAM, 1X/DAY:QD
     Route: 048
     Dates: start: 20180619, end: 20190121
  4. AGRYLIN [Suspect]
     Active Substance: ANAGRELIDE HYDROCHLORIDE
     Dosage: 2 MILLIGRAM, 1X/DAY:QD
     Route: 048
     Dates: start: 20180123, end: 20180409
  5. HYDREA [Concomitant]
     Active Substance: HYDROXYUREA
     Dosage: 1000 MILLIGRAM, 1X/DAY:QD
     Route: 048
     Dates: start: 20190219
  6. AGRYLIN [Suspect]
     Active Substance: ANAGRELIDE HYDROCHLORIDE
     Indication: ESSENTIAL THROMBOCYTHAEMIA
     Dosage: 0.5 MILLIGRAM, 2X/DAY:BID
     Route: 048
     Dates: start: 20171121, end: 20171215
  7. AGRYLIN [Suspect]
     Active Substance: ANAGRELIDE HYDROCHLORIDE
     Dosage: 0.5 MILLIGRAM, 1X/DAY:QD
     Route: 048
     Dates: start: 20190122, end: 20190219
  8. AGRYLIN [Suspect]
     Active Substance: ANAGRELIDE HYDROCHLORIDE
     Dosage: 1.5 MILLIGRAM, 1X/DAY:QD
     Route: 048
     Dates: start: 20171216, end: 20180122

REACTIONS (6)
  - Cardiac failure congestive [Recovering/Resolving]
  - Liver disorder [Unknown]
  - Tachycardia induced cardiomyopathy [Recovering/Resolving]
  - Shock [Unknown]
  - Anaemia [Unknown]
  - Atrial fibrillation [Recovering/Resolving]

NARRATIVE: CASE EVENT DATE: 20180619
